FAERS Safety Report 22333094 (Version 1)
Quarter: 2023Q2

REPORT INFORMATION
  Report Type: Spontaneous
  Country: US (occurrence: US)
  Receive Date: 20230517
  Receipt Date: 20230517
  Transmission Date: 20230722
  Serious: Yes (Hospitalization)
  Sender: FDA-Public Use
  Company Number: US-MYLANLABS-2023M1048217

PATIENT
  Age: 18 Year
  Sex: Female

DRUGS (7)
  1. ESTRADIOL [Suspect]
     Active Substance: ESTRADIOL
     Indication: Hormone replacement therapy
     Dosage: UNK
     Route: 065
  2. ESTRADIOL [Suspect]
     Active Substance: ESTRADIOL
     Dosage: UNK, THERAPY RE-INITIATED
     Route: 065
  3. NORETHINDRONE [Suspect]
     Active Substance: NORETHINDRONE
     Indication: Hormone replacement therapy
     Dosage: UNK
     Route: 065
  4. NORETHINDRONE [Suspect]
     Active Substance: NORETHINDRONE
     Dosage: 10 MILLIGRAM, BID
     Route: 065
  5. LEVONORGESTREL [Suspect]
     Active Substance: LEVONORGESTREL
     Indication: Hormone replacement therapy
     Dosage: UNK
     Route: 015
  6. LEVONORGESTREL [Suspect]
     Active Substance: LEVONORGESTREL
     Indication: Dysmenorrhoea
  7. PROGESTERONE [Suspect]
     Active Substance: PROGESTERONE
     Indication: Hormone replacement therapy
     Dosage: UNK
     Route: 065

REACTIONS (1)
  - Endometriosis [Unknown]
